FAERS Safety Report 15671992 (Version 11)
Quarter: 2020Q1

REPORT INFORMATION
  Report Type: Report from Study
  Country: US (occurrence: US)
  Receive Date: 20181129
  Receipt Date: 20200224
  Transmission Date: 20200409
  Serious: Yes (Other)
  Sender: FDA-Public Use
  Company Number: US-TESARO-US-2017TSO04628

PATIENT
  Age: 83 Year
  Sex: Female

DRUGS (19)
  1. NIRAPARIB CAPSULE [Suspect]
     Active Substance: NIRAPARIB
     Dosage: 100 MG, QD
     Route: 048
     Dates: start: 20171205
  2. HYDROCHLOROTHIAZIDE. [Concomitant]
     Active Substance: HYDROCHLOROTHIAZIDE
     Indication: PRODUCT USED FOR UNKNOWN INDICATION
     Dosage: UNK
  3. NIRAPARIB CAPSULE [Suspect]
     Active Substance: NIRAPARIB
     Indication: OVARIAN CANCER
     Dosage: UNK
     Route: 048
     Dates: start: 20171002, end: 20171031
  4. NIRAPARIB CAPSULE [Suspect]
     Active Substance: NIRAPARIB
     Dosage: 200MG ON MON, WED, FRI AND 100MG ON TUE, THU, SAT, SUN
     Route: 048
     Dates: start: 20180609
  5. SENNA [Concomitant]
     Active Substance: SENNA LEAF\SENNOSIDES\SENNOSIDES A AND B
     Indication: PRODUCT USED FOR UNKNOWN INDICATION
     Dosage: UNK
  6. VISIPAQUE [Concomitant]
     Active Substance: IODIXANOL
     Indication: PRODUCT USED FOR UNKNOWN INDICATION
     Dosage: UNK
  7. NIRAPARIB CAPSULE [Suspect]
     Active Substance: NIRAPARIB
     Dosage: 100 MG, QD
     Route: 048
     Dates: start: 20180530, end: 20180609
  8. NIRAPARIB CAPSULE [Suspect]
     Active Substance: NIRAPARIB
     Dosage: 100 MG CAPS/AS DIRECTED
     Route: 048
  9. NIRAPARIB CAPSULE [Suspect]
     Active Substance: NIRAPARIB
     Dosage: 200 MG ALTERNATING 100 MG DAILY
     Route: 048
     Dates: start: 20180624
  10. NIRAPARIB CAPSULE [Suspect]
     Active Substance: NIRAPARIB
     Dosage: 2 CAPSULE 3 TIMES PER WEEK AND 1 CAPSULE 4 DAYS PER WEEK
     Route: 048
     Dates: start: 20180212
  11. NIRAPARIB CAPSULE [Suspect]
     Active Substance: NIRAPARIB
     Dosage: 2 CAPSULES ALTERNATING DAYS WITH 1 CAPSULE ON OPPOSITE DAYS
     Route: 048
  12. NIRAPARIB CAPSULE [Suspect]
     Active Substance: NIRAPARIB
     Dosage: 200 MG, QD
     Route: 048
     Dates: start: 20180610
  13. BISOPROLOL FUMARATE. [Concomitant]
     Active Substance: BISOPROLOL FUMARATE
     Indication: PRODUCT USED FOR UNKNOWN INDICATION
     Dosage: UNK
  14. GABAPENTIN. [Concomitant]
     Active Substance: GABAPENTIN
     Indication: PRODUCT USED FOR UNKNOWN INDICATION
     Dosage: UNK
  15. NIRAPARIB CAPSULE [Suspect]
     Active Substance: NIRAPARIB
     Dosage: 300 MG, QD
     Route: 048
  16. ELIQUIS [Concomitant]
     Active Substance: APIXABAN
     Indication: PRODUCT USED FOR UNKNOWN INDICATION
     Dosage: UNK
  17. NIRAPARIB CAPSULE [Suspect]
     Active Substance: NIRAPARIB
     Dosage: 200 MG, UNK
     Route: 048
  18. NIRAPARIB CAPSULE [Suspect]
     Active Substance: NIRAPARIB
     Dosage: 200MG ON MON, WED, FRI AND 100MG ON TUE, THU, SAT, SUN
     Route: 048
  19. NIRAPARIB CAPSULE [Suspect]
     Active Substance: NIRAPARIB
     Dosage: 200 MG ON MONDAY, WEDNESDAY, FRIDAY AND 100 MG ON TUESDAY, THURSDAY, SATURDAY, SUNDAY
     Route: 048

REACTIONS (29)
  - Thrombosis [Unknown]
  - Blood pressure increased [Not Recovered/Not Resolved]
  - Cough [Not Recovered/Not Resolved]
  - Feeling abnormal [Unknown]
  - Hypoaesthesia [Not Recovered/Not Resolved]
  - Oedema [Recovering/Resolving]
  - Fall [Recovering/Resolving]
  - Wrist fracture [Unknown]
  - Inappropriate schedule of product administration [Unknown]
  - Gait disturbance [Not Recovered/Not Resolved]
  - Ear infection [Unknown]
  - Back pain [Not Recovered/Not Resolved]
  - Neuropathy peripheral [Unknown]
  - Insomnia [Unknown]
  - Pain in extremity [Not Recovered/Not Resolved]
  - Upper limb fracture [Unknown]
  - Cellulitis [Recovering/Resolving]
  - Decreased appetite [Not Recovered/Not Resolved]
  - Tendon injury [Unknown]
  - Peripheral swelling [Recovering/Resolving]
  - Joint swelling [Unknown]
  - Skin discolouration [Not Recovered/Not Resolved]
  - Arthritis [Unknown]
  - Contusion [Recovering/Resolving]
  - Sputum discoloured [Unknown]
  - Choking [Unknown]
  - Gout [Not Recovered/Not Resolved]
  - Nasopharyngitis [Unknown]
  - Peripheral vascular disorder [Not Recovered/Not Resolved]

NARRATIVE: CASE EVENT DATE: 20180620
